FAERS Safety Report 25926794 (Version 1)
Quarter: 2025Q4

REPORT INFORMATION
  Report Type: Spontaneous
  Country: US (occurrence: US)
  Receive Date: 20251015
  Receipt Date: 20251015
  Transmission Date: 20260117
  Serious: Yes (Other)
  Sender: AMERICAN REGENT
  Company Number: US-AMERICAN REGENT INC-2025003725

PATIENT
  Sex: Female

DRUGS (1)
  1. FERRIC CARBOXYMALTOSE [Suspect]
     Active Substance: FERRIC CARBOXYMALTOSE
     Indication: Product used for unknown indication
     Dosage: UNK, SINGLE
     Route: 065
     Dates: start: 20251006, end: 20251006

REACTIONS (7)
  - Dyspepsia [Recovered/Resolved]
  - Defaecation urgency [Recovered/Resolved]
  - Cold sweat [Recovered/Resolved]
  - Chest discomfort [Recovered/Resolved]
  - Blood pressure systolic decreased [Recovered/Resolved]
  - Abdominal pain [Recovered/Resolved]
  - Vomiting [Recovered/Resolved]

NARRATIVE: CASE EVENT DATE: 20251006
